FAERS Safety Report 15963609 (Version 1)
Quarter: 2019Q1

REPORT INFORMATION
  Report Type: Spontaneous
  Country: US (occurrence: US)
  Receive Date: 20190214
  Receipt Date: 20190214
  Transmission Date: 20190417
  Serious: Yes (Other)
  Sender: FDA-Public Use
  Company Number: US-TEVA-2019-US-1009488

PATIENT
  Sex: Female

DRUGS (2)
  1. COPAXONE [Suspect]
     Active Substance: GLATIRAMER ACETATE
     Indication: MULTIPLE SCLEROSIS
     Route: 058
     Dates: start: 20051111, end: 20140718
  2. COPAXONE [Suspect]
     Active Substance: GLATIRAMER ACETATE
     Route: 058
     Dates: start: 20140721, end: 20190117

REACTIONS (6)
  - Multiple sclerosis relapse [Unknown]
  - Diabetes mellitus [Unknown]
  - Hypoaesthesia [Recovered/Resolved]
  - Eyelid ptosis [Recovered/Resolved]
  - Hypertonic bladder [Unknown]
  - Facial paralysis [Unknown]

NARRATIVE: CASE EVENT DATE: 2018
